FAERS Safety Report 8340364-X (Version None)
Quarter: 2012Q2

REPORT INFORMATION
  Report Type: 
  Country: None (occurrence: None)
  Receive Date: 20120507
  Receipt Date: 20120427
  Transmission Date: 20120825
  Serious: Yes (Hospitalization)
  Sender: FDA-Public Use
  Company Number: US-PFIZER INC-2012106248

PATIENT
  Age: 65 Year
  Sex: Male

DRUGS (2)
  1. DASATINIB [Suspect]
     Indication: ACUTE MYELOID LEUKAEMIA
     Dosage: 1600 MG,  TOTAL DOSE OF 3RD CYCLE
     Route: 048
     Dates: start: 20111224
  2. CYTARABINE [Suspect]
     Indication: ACUTE MYELOID LEUKAEMIA
     Dosage: 18000 MG, TOTAL DOSE OF 3RD CYCLE
     Route: 042
     Dates: start: 20111224

REACTIONS (1)
  - FEBRILE NEUTROPENIA [None]
